FAERS Safety Report 6768248-9 (Version None)
Quarter: 2010Q2

REPORT INFORMATION
  Report Type: 
  Country: None (occurrence: None)
  Receive Date: 20100614
  Receipt Date: 20100607
  Transmission Date: 20101027
  Serious: Yes (Disabling)
  Sender: FDA-Public Use
  Company Number: CA-ASTRAZENECA-2010SE26928

PATIENT

DRUGS (4)
  1. CRESTOR [Suspect]
     Route: 048
  2. AVANDAMET [Concomitant]
     Route: 065
  3. DIOVAN [Concomitant]
     Route: 065
  4. SYNTHROID [Concomitant]
     Route: 065

REACTIONS (4)
  - ARTHRALGIA [None]
  - DISABILITY [None]
  - DISCOMFORT [None]
  - MYALGIA [None]
